FAERS Safety Report 9535799 (Version 1)
Quarter: 2013Q3

REPORT INFORMATION
  Report Type: Spontaneous
  Country: ES (occurrence: ES)
  Receive Date: 20130919
  Receipt Date: 20130919
  Transmission Date: 20140515
  Serious: Yes (Hospitalization)
  Sender: FDA-Public Use
  Company Number: ES-009507513-1309ESP007809

PATIENT
  Age: 46 Year
  Sex: Female

DRUGS (6)
  1. REXER [Suspect]
     Indication: SUICIDE ATTEMPT
     Dosage: 4 CPS
     Route: 048
     Dates: start: 20121212, end: 20121212
  2. QUETIAPINE FUMARATE [Suspect]
     Indication: SUICIDE ATTEMPT
     Dosage: 5 TABLETS
     Route: 048
     Dates: start: 20121212, end: 20121212
  3. RIVOTRIL [Suspect]
     Indication: SUICIDE ATTEMPT
     Dosage: 20 CPS
     Route: 048
     Dates: start: 20121212, end: 20121212
  4. REXER [Concomitant]
     Indication: DEPRESSION
     Dosage: 1/2-1/2-1/2
     Route: 048
     Dates: start: 2008, end: 20121212
  5. QUETIAPINE FUMARATE [Concomitant]
     Indication: PERSONALITY DISORDER
     Dosage: 1-1-1
     Route: 048
     Dates: start: 2008, end: 20121212
  6. RIVOTRIL [Concomitant]
     Indication: ANXIETY
     Dosage: 1-1-1
     Route: 048
     Dates: start: 2008, end: 20121212

REACTIONS (2)
  - Depressed level of consciousness [Recovered/Resolved]
  - Rhabdomyolysis [Recovered/Resolved]
